FAERS Safety Report 4584523-0 (Version None)
Quarter: 2005Q1

REPORT INFORMATION
  Report Type: 
  Country: None (occurrence: None)
  Receive Date: 20050216
  Receipt Date: 20040624
  Transmission Date: 20050727
  Serious: Yes (Hospitalization, Other)
  Sender: FDA-Public Use
  Company Number: DE-ABBOTT-04P-062-0265089-00

PATIENT
  Sex: Female
  Weight: 70 kg

DRUGS (7)
  1. HUMIRA [Suspect]
     Indication: RHEUMATOID ARTHRITIS
     Route: 058
     Dates: start: 20040101
  2. METHOTREXATE SODIUM [Concomitant]
     Indication: RHEUMATOID ARTHRITIS
     Route: 058
  3. METHOTREXATE SODIUM [Concomitant]
  4. METHOTREXATE SODIUM [Concomitant]
  5. PREDNISONE [Concomitant]
     Indication: RHEUMATOID ARTHRITIS
     Route: 048
  6. DICLOFENAC SODIUM [Concomitant]
     Indication: RHEUMATOID ARTHRITIS
     Route: 048
  7. INFLIXIMAB [Concomitant]
     Indication: DRUG USE FOR UNKNOWN INDICATION
     Dates: start: 20031202

REACTIONS (2)
  - PLEURAL EFFUSION [None]
  - PULMONARY EMBOLISM [None]
